FAERS Safety Report 8963232 (Version 1)
Quarter: 2012Q4

REPORT INFORMATION
  Report Type: 
  Country: JP (occurrence: JP)
  Receive Date: 20121214
  Receipt Date: 20121214
  Transmission Date: 20130627
  Serious: Yes (Other)
  Sender: FDA-Public Use
  Company Number: JP-009507513-2012SP008751

PATIENT
  Age: 66 Year
  Sex: Male
  Weight: 58 kg

DRUGS (9)
  1. PEGINTRON [Suspect]
     Indication: CHRONIC HEPATITIS C
     Dosage: 80 Microgram, qw
     Route: 058
     Dates: start: 20120130, end: 20120227
  2. REBETOL [Suspect]
     Indication: CHRONIC HEPATITIS C
     Dosage: 600 mg, QD
     Route: 048
     Dates: start: 20120130, end: 20120214
  3. REBETOL [Suspect]
     Dosage: 400 mg, QD
     Route: 048
     Dates: start: 20120215, end: 20120220
  4. REBETOL [Suspect]
     Dosage: 200 mg, QD
     Route: 048
     Dates: start: 20120221, end: 20120227
  5. TELAVIC [Suspect]
     Indication: CHRONIC HEPATITIS C
     Dosage: 2250 mg, qd
     Route: 048
     Dates: start: 20120130, end: 20120203
  6. CLARITIN [Suspect]
     Indication: CHRONIC HEPATITIS C
     Dosage: 10 mg, QD
     Route: 048
     Dates: start: 20120130, end: 20120220
  7. BLOPRESS [Concomitant]
     Dosage: 8 mg, qd
     Route: 048
     Dates: end: 20120201
  8. CONIEL [Concomitant]
     Dosage: 4 mg, qd
     Route: 048
     Dates: end: 20120210
  9. ACINON [Concomitant]
     Indication: CHRONIC HEPATITIS C
     Dosage: 75 mg, qd
     Route: 048
     Dates: start: 20120201, end: 20120227

REACTIONS (5)
  - Blood uric acid increased [Not Recovered/Not Resolved]
  - Renal disorder [Recovered/Resolved]
  - Vomiting [Not Recovered/Not Resolved]
  - Anaemia [Recovered/Resolved]
  - Dehydration [Not Recovered/Not Resolved]
